FAERS Safety Report 7412053-7 (Version None)
Quarter: 2011Q2

REPORT INFORMATION
  Report Type: 
  Country: None (occurrence: None)
  Receive Date: 20110413
  Receipt Date: 20110407
  Transmission Date: 20111010
  Serious: Yes (Other)
  Sender: FDA-Public Use
  Company Number: JP-SANOFI-AVENTIS-2010SA075717

PATIENT
  Age: 81 Year
  Sex: Female
  Weight: 53 kg

DRUGS (22)
  1. AMARYL [Interacting]
     Dosage: 5-0-1.0
     Route: 048
     Dates: start: 20101123, end: 20101130
  2. VICTOZA [Interacting]
     Route: 058
     Dates: start: 20101124
  3. AMARYL [Interacting]
     Route: 048
     Dates: start: 20101201, end: 20101201
  4. AMARYL [Interacting]
     Route: 048
     Dates: start: 20101202, end: 20101207
  5. VICTOZA [Interacting]
     Route: 058
     Dates: start: 20101117
  6. AMLODIN [Concomitant]
     Indication: HYPERTENSION
     Route: 048
  7. NEUQUINON [Concomitant]
     Route: 048
     Dates: end: 20101122
  8. GLUCOBAY [Concomitant]
     Indication: DIABETES MELLITUS
     Route: 048
     Dates: start: 20050601
  9. MEVALOTIN [Concomitant]
     Indication: DYSLIPIDAEMIA
     Route: 048
  10. GLUCOBAY [Concomitant]
     Route: 048
     Dates: start: 20080801
  11. AMARYL [Suspect]
     Indication: DIABETES MELLITUS
     Route: 048
     Dates: start: 20101112, end: 20101112
  12. BLOPRESS [Concomitant]
     Indication: HYPERTENSION
     Route: 048
     Dates: start: 20070101
  13. AMARYL [Interacting]
     Dosage: 1-0-0.5
     Route: 048
     Dates: start: 20101113, end: 20101114
  14. AMARYL [Interacting]
     Dosage: 2-0-0.5
     Route: 048
     Dates: start: 20101115, end: 20101119
  15. AMARYL [Interacting]
     Dosage: 4-0-1.0
     Route: 048
     Dates: start: 20101122, end: 20101122
  16. AMARYL [Interacting]
     Dosage: 3-0-0.5
     Route: 048
     Dates: start: 20101120, end: 20101121
  17. BLOPRESS [Concomitant]
     Route: 048
     Dates: start: 20100727
  18. ZANTAC [Concomitant]
     Route: 048
  19. METHYCOBAL [Concomitant]
     Indication: NEUROPATHY PERIPHERAL
     Route: 048
     Dates: start: 20101108
  20. VICTOZA [Interacting]
     Route: 058
     Dates: start: 20101109
  21. MAGLAX [Concomitant]
     Indication: CONSTIPATION
     Route: 048
  22. GLUCOBAY [Concomitant]
     Route: 048
     Dates: start: 20101123

REACTIONS (3)
  - DRUG EFFECT DELAYED [None]
  - HYPOGLYCAEMIA [None]
  - DRUG INTERACTION [None]
